FAERS Safety Report 4653068-1 (Version None)
Quarter: 2005Q2

REPORT INFORMATION
  Report Type: 
  Country: None (occurrence: None)
  Receive Date: 20050505
  Receipt Date: 20050225
  Transmission Date: 20051028
  Serious: Yes (Hospitalization)
  Sender: FDA-Public Use
  Company Number: US-MERCK-0503USA00097

PATIENT
  Age: 82 Year
  Sex: Male

DRUGS (9)
  1. VIOXX [Suspect]
     Indication: CARPAL TUNNEL SYNDROME
     Route: 048
     Dates: start: 20030301, end: 20040401
  2. VIOXX [Suspect]
     Indication: ARTHRITIS
     Route: 048
     Dates: start: 20030301, end: 20040401
  3. PREVACID [Concomitant]
     Route: 065
  4. NAPROXEN [Concomitant]
     Route: 065
     Dates: start: 19890101, end: 20030101
  5. AMLODIPINE BESYLATE [Concomitant]
     Route: 065
     Dates: start: 19860101
  6. FELODIPINE [Concomitant]
     Route: 065
     Dates: start: 19860101
  7. ASPIRIN [Concomitant]
     Route: 065
  8. ACTONEL [Concomitant]
     Route: 065
  9. HERBS (UNSPECIFIED) [Concomitant]
     Route: 065

REACTIONS (9)
  - ANAEMIA [None]
  - CARDIAC PACEMAKER INSERTION [None]
  - CEREBROVASCULAR ACCIDENT [None]
  - DIZZINESS [None]
  - DYSPEPSIA [None]
  - NAUSEA [None]
  - OSTEOPOROSIS [None]
  - VOMITING [None]
  - WEIGHT DECREASED [None]
